FAERS Safety Report 4737361-X (Version None)
Quarter: 2005Q3

REPORT INFORMATION
  Report Type: 
  Country: None (occurrence: None)
  Receive Date: 20050809
  Receipt Date: 20050717
  Transmission Date: 20060218
  Serious: Yes (Death, Life-Threatening, Hospitalization)
  Sender: FDA-Public Use
  Company Number: CA-BOEHRINGER INGELHEIM PHARMACEUTICALS, INC.-2005-CN-00807CN

PATIENT
  Sex: Female
  Weight: 92.2 kg

DRUGS (3)
  1. TIPRANAVIR + RITONAVIR CO-ADMIN [Suspect]
     Dosage: 1000MG TPV / 200MG RTV
     Route: 048
     Dates: start: 20040812, end: 20050714
  2. TENOFOVIR [Concomitant]
     Route: 048
     Dates: start: 20040812, end: 20050714
  3. LAMIVUDINE [Concomitant]
     Route: 048
     Dates: start: 20040812, end: 20050714

REACTIONS (6)
  - DEATH [None]
  - HEADACHE [None]
  - INTRACRANIAL PRESSURE INCREASED [None]
  - OPISTHOTONUS [None]
  - RESPIRATORY ARREST [None]
  - THERAPY NON-RESPONDER [None]
